FAERS Safety Report 5750396-3 (Version None)
Quarter: 2008Q2

REPORT INFORMATION
  Report Type: 
  Country: None (occurrence: None)
  Receive Date: 20080523
  Receipt Date: 20080523
  Transmission Date: 20081010
  Serious: Yes (Other)
  Sender: FDA-Public Use
  Company Number: None

PATIENT
  Age: 76 Year
  Sex: Female
  Weight: 54.4316 kg

DRUGS (6)
  1. LISINOPRIL AND HYDROCHLOROTHIAZIDE [Suspect]
     Indication: BLOOD PRESSURE
     Dosage: 20/25 MG 1 PER DAY
     Dates: start: 20080201
  2. LISINOPRIL AND HYDROCHLOROTHIAZIDE [Suspect]
     Indication: BLOOD PRESSURE
     Dosage: 20/25 MG 1 PER DAY
     Dates: start: 20080408
  3. TOPROL-XL [Concomitant]
  4. BONIVA [Concomitant]
  5. ASPIRIN [Concomitant]
  6. MULTIPLE VITAMIN [Concomitant]

REACTIONS (4)
  - COUGH [None]
  - DRY MOUTH [None]
  - PHARMACEUTICAL PRODUCT COMPLAINT [None]
  - SLEEP DISORDER [None]
